FAERS Safety Report 4760733-4 (Version None)
Quarter: 2005Q3

REPORT INFORMATION
  Report Type: 
  Country: None (occurrence: None)
  Receive Date: 20050902
  Receipt Date: 20050815
  Transmission Date: 20060218
  Serious: Yes (Other)
  Sender: FDA-Public Use
  Company Number: 200516241US

PATIENT
  Sex: Male
  Weight: 65.9 kg

DRUGS (5)
  1. KETEK [Suspect]
     Indication: SINUS OPERATION
     Route: 048
     Dates: start: 20050727, end: 20050731
  2. NOVOLIN 70/30 [Concomitant]
     Dosage: DOSE: UNKNOWN
  3. NORVASC [Concomitant]
  4. MAGNESIUM [Concomitant]
     Dosage: DOSE: UNKNOWN
  5. ASCORBIC ACID [Concomitant]
     Dosage: DOSE: UNKNOWN

REACTIONS (6)
  - CHROMATURIA [None]
  - DIARRHOEA [None]
  - FAECES PALE [None]
  - JAUNDICE [None]
  - LIVER FUNCTION TEST ABNORMAL [None]
  - LIVER SCAN ABNORMAL [None]
